FAERS Safety Report 8817725 (Version 1)
Quarter: 2012Q4

REPORT INFORMATION
  Report Type: 
  Country: BR (occurrence: BR)
  Receive Date: 20121001
  Receipt Date: 20121001
  Transmission Date: 20130627
  Serious: Yes (Other)
  Sender: FDA-Public Use
  Company Number: BR-PFIZER INC-2012238850

PATIENT
  Sex: Male

DRUGS (2)
  1. CELEBRA [Suspect]
     Indication: PAIN
     Dosage: 100 mg, 2x/day (every 12 hours)
     Route: 048
     Dates: start: 20120922, end: 20120923
  2. DIGOXINE [Concomitant]
     Dosage: UNK

REACTIONS (10)
  - Poisoning [Unknown]
  - Rash [Not Recovered/Not Resolved]
  - Pruritus generalised [Not Recovered/Not Resolved]
  - Rash macular [Not Recovered/Not Resolved]
  - Skin injury [Not Recovered/Not Resolved]
  - Oedema peripheral [Not Recovered/Not Resolved]
  - Erythema [Not Recovered/Not Resolved]
  - Pruritus [Not Recovered/Not Resolved]
  - Skin discolouration [Not Recovered/Not Resolved]
  - Depression [Not Recovered/Not Resolved]
